FAERS Safety Report 23320185 (Version 1)
Quarter: 2023Q4

REPORT INFORMATION
  Report Type: Spontaneous
  Country: US (occurrence: None)
  Receive Date: 20231219
  Receipt Date: 20231219
  Transmission Date: 20240110
  Serious: Yes (Other)
  Sender: FDA-Public Use
  Company Number: None

PATIENT
  Age: 68 Year
  Sex: Female
  Weight: 72 kg

DRUGS (16)
  1. OZEMPIC [Suspect]
     Active Substance: SEMAGLUTIDE
     Indication: Type 2 diabetes mellitus
     Dosage: 1 INJECTION WEEKLY SUBCUTANEOUS
     Route: 050
     Dates: start: 20230801, end: 20231206
  2. METFORMIN HYDROCHLORIDE [Concomitant]
     Active Substance: METFORMIN HYDROCHLORIDE
  3. GLIPIZIDE [Concomitant]
     Active Substance: GLIPIZIDE
  4. ATENOLOL [Concomitant]
     Active Substance: ATENOLOL
  5. LEVOTHYROXINE [Concomitant]
     Active Substance: LEVOTHYROXINE
  6. HYDROCHLOROTHIAZIDE [Concomitant]
     Active Substance: HYDROCHLOROTHIAZIDE
  7. NIACIN [Concomitant]
     Active Substance: NIACIN
  8. ASPIRIN [Concomitant]
     Active Substance: ASPIRIN
  9. PEPCID [Concomitant]
     Active Substance: FAMOTIDINE
  10. LINZESS [Concomitant]
     Active Substance: LINACLOTIDE
  11. RESTASIS [Concomitant]
     Active Substance: CYCLOSPORINE
  12. ARMODAFINIL [Concomitant]
     Active Substance: ARMODAFINIL
  13. CITALOPRAM [Concomitant]
     Active Substance: CITALOPRAM HYDROBROMIDE
  14. GARLIC [Concomitant]
     Active Substance: GARLIC
  15. Omega 3 [Concomitant]
  16. COENZYME Q10 [Concomitant]
     Active Substance: DIETARY SUPPLEMENT\UBIDECARENONE

REACTIONS (2)
  - Intestinal obstruction [None]
  - Constipation [None]

NARRATIVE: CASE EVENT DATE: 20231209
